FAERS Safety Report 10408123 (Version 2)
Quarter: 2014Q4

REPORT INFORMATION
  Report Type: Report from Study
  Country: AT (occurrence: AT)
  Receive Date: 20140826
  Receipt Date: 20141030
  Transmission Date: 20150528
  Serious: Yes (Hospitalization)
  Sender: FDA-Public Use
  Company Number: AT-AMGEN-AUTCT2014064347

PATIENT
  Age: 62 Year
  Sex: Female

DRUGS (5)
  1. MAXI-KALZ VIT D3 [Concomitant]
     Active Substance: CALCIUM CARBONATE\CHOLECALCIFEROL
     Dosage: 500 UNK, QD
     Route: 048
     Dates: start: 2011
  2. EUTHYROX [Concomitant]
     Active Substance: LEVOTHYROXINE SODIUM
     Dosage: 0.125 UNK, UNK
     Route: 048
     Dates: start: 1973
  3. VOLON A40 [Concomitant]
     Indication: INFLAMMATION
     Dosage: 40 MG, UNK
  4. DENOSUMAB [Suspect]
     Active Substance: DENOSUMAB
     Indication: BONE DENSITY DECREASED
     Dosage: 60 MG, UNK
     Route: 058
     Dates: start: 20110214
  5. FEMARA [Concomitant]
     Active Substance: LETROZOLE
     Dosage: 2.5 UNK, QD
     Route: 048
     Dates: start: 2008

REACTIONS (1)
  - Prosthesis implantation [Recovered/Resolved]

NARRATIVE: CASE EVENT DATE: 20140227
